FAERS Safety Report 12495362 (Version 1)
Quarter: 2016Q2

REPORT INFORMATION
  Report Type: Other
  Country: JP (occurrence: JP)
  Receive Date: 20160624
  Receipt Date: 20160624
  Transmission Date: 20160815
  Serious: Yes (Hospitalization)
  Sender: FDA-Public Use
  Company Number: JP-LUPIN PHARMACEUTICALS INC.-2016-02737

PATIENT
  Age: 33 Year
  Sex: Female

DRUGS (4)
  1. DIHYDROCODEINE PHOSPHATE [Suspect]
     Active Substance: DIHYDROCODEINE PHOSPHATE
     Indication: SUICIDE ATTEMPT
     Dosage: 117 MG
     Route: 065
  2. SERTRALINE [Suspect]
     Active Substance: SERTRALINE HYDROCHLORIDE
     Indication: SUICIDE ATTEMPT
     Dosage: 1050 MG
     Route: 065
  3. ACETAMINOPHEN. [Suspect]
     Active Substance: ACETAMINOPHEN
     Indication: SUICIDE ATTEMPT
     Dosage: 4500 MG
     Route: 065
  4. IBUPROFEN. [Suspect]
     Active Substance: IBUPROFEN
     Indication: SUICIDE ATTEMPT
     Dosage: 1500 MG
     Route: 065

REACTIONS (7)
  - Overdose [Unknown]
  - Dermatitis [Unknown]
  - Toxicity to various agents [Unknown]
  - Suicide attempt [Unknown]
  - Somnolence [Unknown]
  - Angina pectoris [Unknown]
  - Inflammation [Unknown]
